FAERS Safety Report 6113038-3 (Version None)
Quarter: 2009Q1

REPORT INFORMATION
  Report Type: 
  Country: None (occurrence: None)
  Receive Date: 20090312
  Receipt Date: 20090310
  Transmission Date: 20090719
  Serious: Yes (Hospitalization, Disabling)
  Sender: FDA-Public Use
  Company Number: D0060648A

PATIENT
  Age: 65 Year
  Sex: Male
  Weight: 80 kg

DRUGS (6)
  1. ARIXTRA [Suspect]
     Indication: RADICULAR PAIN
     Dosage: 2.5MG PER DAY
     Route: 058
     Dates: start: 20081007, end: 20081228
  2. ENALAPRIL MALEATE [Concomitant]
     Route: 048
  3. METOPROLOL TARTRATE [Concomitant]
     Dosage: 50MG TWICE PER DAY
     Route: 048
  4. AMARYL [Concomitant]
     Dosage: 1.5MG PER DAY
     Route: 048
  5. FALITHROM [Concomitant]
     Route: 065
  6. CORTISON [Concomitant]
     Route: 065
     Dates: start: 20080901

REACTIONS (5)
  - CEREBROVASCULAR ACCIDENT [None]
  - DYSARTHRIA [None]
  - DYSPHAGIA [None]
  - HEMIPARESIS [None]
  - ISCHAEMIA [None]
